FAERS Safety Report 9961490 (Version 1)
Quarter: 2014Q1

REPORT INFORMATION
  Report Type: Spontaneous
  Country: SE (occurrence: SE)
  Receive Date: 20140305
  Receipt Date: 20140305
  Transmission Date: 20141002
  Serious: Yes (Other)
  Sender: FDA-Public Use
  Company Number: PHHY2014SE024256

PATIENT
  Age: 4 Year
  Sex: Male

DRUGS (2)
  1. SANDIMMUN NEORAL [Suspect]
     Dosage: 50 MG, BID
     Route: 048
     Dates: start: 201112
  2. SANDIMMUN NEORAL [Suspect]
     Dosage: 20 MG, BID
     Route: 048
     Dates: start: 201112

REACTIONS (2)
  - Tonsillar hypertrophy [Not Recovered/Not Resolved]
  - Dysphagia [Unknown]
